FAERS Safety Report 7927763-2 (Version None)
Quarter: 2011Q4

REPORT INFORMATION
  Report Type: 
  Country: None (occurrence: None)
  Receive Date: 20111118
  Receipt Date: 20111114
  Transmission Date: 20120403
  Serious: Yes (Hospitalization, Other)
  Sender: FDA-Public Use
  Company Number: US-ALEXION-A201101646

PATIENT
  Sex: Female
  Weight: 106 kg

DRUGS (13)
  1. SOLIRIS [Suspect]
     Indication: HAEMOLYTIC URAEMIC SYNDROME
     Dosage: UNK
     Route: 042
  2. CARDIZEM [Concomitant]
     Dosage: 360 MG, QD
  3. ADVAIR DISKUS 100/50 [Concomitant]
     Dosage: UNK
  4. NAFTIN [Concomitant]
     Indication: NAIL DISORDER
     Dosage: UNK
  5. NEXIUM [Concomitant]
     Dosage: 40 MG, QD
  6. TYLENOL EXTRA STRENGTH [Concomitant]
  7. CARAFATE [Concomitant]
     Dosage: 1 G, BID
  8. CENTRUM [Concomitant]
  9. DICYCLOMINE [Concomitant]
     Dosage: 10 MG, BID
     Route: 048
  10. ARICEPT [Concomitant]
     Dosage: 5 MG, QD
  11. ASPIRIN [Concomitant]
     Dosage: 81 MG, QD
  12. MECLIZINE [Concomitant]
     Dosage: 25 MG, UNK
  13. CELEXA [Concomitant]
     Dosage: 40 MG, QD

REACTIONS (5)
  - SEPSIS [None]
  - PNEUMONIA [None]
  - CHRONIC RESPIRATORY FAILURE [None]
  - HEPATITIS C [None]
  - INTESTINAL OBSTRUCTION [None]
